FAERS Safety Report 7512608-5 (Version None)
Quarter: 2011Q2

REPORT INFORMATION
  Report Type: 
  Country: None (occurrence: None)
  Receive Date: 20110531
  Receipt Date: 20110520
  Transmission Date: 20111010
  Serious: Yes (Hospitalization)
  Sender: FDA-Public Use
  Company Number: US-ROCHE-779560

PATIENT
  Sex: Female

DRUGS (3)
  1. RIBAVIRIN [Suspect]
     Route: 065
  2. NEUPOGEN [Suspect]
     Indication: NEUTROPENIA
     Route: 065
     Dates: start: 20101201
  3. INTERFERON [Suspect]
     Route: 065

REACTIONS (14)
  - PYREXIA [None]
  - FEELING COLD [None]
  - PLATELET COUNT DECREASED [None]
  - VIITH NERVE PARALYSIS [None]
  - NEUTROPHIL COUNT DECREASED [None]
  - FACIAL PAIN [None]
  - RASH [None]
  - MUSCULOSKELETAL DISCOMFORT [None]
  - CHEST DISCOMFORT [None]
  - SWELLING FACE [None]
  - EYE SWELLING [None]
  - DYSPNOEA [None]
  - PRURITUS [None]
  - PAIN IN JAW [None]
